FAERS Safety Report 23344599 (Version 1)
Quarter: 2023Q4

REPORT INFORMATION
  Report Type: Spontaneous
  Country: US (occurrence: US)
  Receive Date: 20231228
  Receipt Date: 20231228
  Transmission Date: 20240110
  Serious: Yes (Death, Hospitalization, Other)
  Sender: FDA-Public Use
  Company Number: US-NOVOPROD-1155170

PATIENT
  Age: 76 Year
  Sex: Male

DRUGS (1)
  1. OZEMPIC [Suspect]
     Active Substance: SEMAGLUTIDE
     Indication: Weight decreased
     Dosage: 1 MG, QW
     Route: 058
     Dates: start: 202307

REACTIONS (11)
  - Acute kidney injury [Fatal]
  - Acute hepatic failure [Fatal]
  - Gastrointestinal haemorrhage [Fatal]
  - Bile duct stone [Unknown]
  - Sepsis [Unknown]
  - Cholangitis [Unknown]
  - Lethargy [Unknown]
  - Asthenia [Unknown]
  - Pancreatitis acute [Unknown]
  - Constipation [Unknown]
  - Off label use [Unknown]

NARRATIVE: CASE EVENT DATE: 20230101
